FAERS Safety Report 19928715 (Version 5)
Quarter: 2022Q1

REPORT INFORMATION
  Report Type: Report from Study
  Country: FR (occurrence: None)
  Receive Date: 20211007
  Receipt Date: 20220128
  Transmission Date: 20220423
  Serious: Yes (Hospitalization)
  Sender: FDA-Public Use
  Company Number: FR-ROCHE-2927604

PATIENT
  Age: 63 Year
  Sex: Female
  Weight: 81 kg

DRUGS (22)
  1. ATEZOLIZUMAB [Suspect]
     Active Substance: ATEZOLIZUMAB
     Indication: Triple negative breast cancer
     Dosage: ON 10/SEP/2021, THE PATIENT RECEIVED MOST RECENT DOSE OF ATEZOLIZUMAB (840 MG) PRIOR TO SERIOUS ADVE
     Route: 041
     Dates: start: 20190807
  2. SELICRELUMAB [Suspect]
     Active Substance: SELICRELUMAB
     Indication: Triple negative breast cancer
     Dosage: ON DAY 1 OF CYCLES 1 TO 4 AND EVERY THIRD CYCLE THEREAFTER (CYCLE = 28 DAYS)
     Route: 058
     Dates: start: 20190807
  3. BEVACIZUMAB [Suspect]
     Active Substance: BEVACIZUMAB
     Indication: Triple negative breast cancer
     Dosage: ON 30/JUL/2021, THE PATIENT RECEIVED MOST RECENT DOSE OF BEVACIZUMAB (770 MG)?10 MG/KG ON DAYS 1 AND
     Route: 042
     Dates: start: 20190807
  4. ESCITALOPRAM OXALATE [Concomitant]
     Active Substance: ESCITALOPRAM OXALATE
     Indication: Anxiety
     Route: 048
     Dates: start: 20190723
  5. ACETAMINOPHEN [Concomitant]
     Active Substance: ACETAMINOPHEN
     Indication: Prophylaxis
     Route: 042
     Dates: start: 20190807
  6. POLARAMINE [Concomitant]
     Active Substance: DEXCHLORPHENIRAMINE MALEATE
     Indication: Prophylaxis
     Route: 042
     Dates: start: 20190807
  7. DIPROSONE [Concomitant]
     Active Substance: BETAMETHASONE DIPROPIONATE
     Indication: Skin infection
     Dates: start: 20190814
  8. PERINDOPRIL [Concomitant]
     Active Substance: PERINDOPRIL
     Indication: Proteinuria
     Route: 048
     Dates: start: 20200814, end: 20211011
  9. PERINDOPRIL [Concomitant]
     Active Substance: PERINDOPRIL
     Route: 048
     Dates: start: 20211112
  10. HEXAQUINE [Concomitant]
     Active Substance: NIAOULI OIL\QUININE BENZOATE\THIAMINE HYDROCHLORIDE
     Indication: Muscle spasms
     Route: 048
     Dates: start: 20200828
  11. ECONAZOLE [Concomitant]
     Active Substance: ECONAZOLE
     Indication: Vulvovaginal candidiasis
     Dosage: DOSE OTHER WITH ROUTE PV
     Dates: start: 20200818
  12. AMLODIPINE [Concomitant]
     Active Substance: AMLODIPINE BESYLATE
     Indication: Hypertension
     Route: 048
     Dates: start: 20201022
  13. BETAMETHASONE [Concomitant]
     Active Substance: BETAMETHASONE
     Indication: Pruritus
     Dosage: DOSE 1 OTHER
     Route: 061
     Dates: start: 20201120
  14. ATORVASTATIN [Concomitant]
     Active Substance: ATORVASTATIN
     Indication: Hypercholesterolaemia
     Route: 048
     Dates: start: 20210210
  15. FERROUS SULFATE ANHYDROUS [Concomitant]
     Active Substance: FERROUS SULFATE ANHYDROUS
     Indication: Iron deficiency
     Route: 048
     Dates: start: 20210311
  16. COMIRNATY [Concomitant]
     Active Substance: TOZINAMERAN
     Indication: COVID-19
     Dosage: DOSE 1 UNIT NOT REPORTED
     Route: 030
     Dates: start: 20210806, end: 20210806
  17. FLUTICASONE PROPIONATE [Concomitant]
     Active Substance: FLUTICASONE PROPIONATE
     Indication: Pruritus
     Route: 061
     Dates: start: 20211112, end: 20211121
  18. CLOBETASOL PROPIONATE [Concomitant]
     Active Substance: CLOBETASOL PROPIONATE
     Route: 061
     Dates: start: 20211116, end: 20211126
  19. CLOBETASOL PROPIONATE [Concomitant]
     Active Substance: CLOBETASOL PROPIONATE
     Route: 061
     Dates: start: 20211127, end: 20211206
  20. GLYCERIN\MINERAL OIL\PETROLATUM [Concomitant]
     Active Substance: GLYCERIN\MINERAL OIL\PETROLATUM
     Route: 061
     Dates: start: 20211126
  21. AMOXICILLIN [Concomitant]
     Active Substance: AMOXICILLIN
     Route: 048
     Dates: start: 20211126, end: 20211203
  22. CLAVULANIC ACID [Concomitant]
     Active Substance: CLAVULANIC ACID
     Route: 048
     Dates: start: 20211126, end: 20211203

REACTIONS (1)
  - Myocardial ischaemia [Not Recovered/Not Resolved]

NARRATIVE: CASE EVENT DATE: 20210829
